FAERS Safety Report 12691145 (Version 1)
Quarter: 2016Q3

REPORT INFORMATION
  Report Type: Spontaneous
  Country: JP (occurrence: JP)
  Receive Date: 20160826
  Receipt Date: 20160826
  Transmission Date: 20161109
  Serious: Yes (Hospitalization, Other)
  Sender: FDA-Public Use
  Company Number: JP-009507513-1608JPN005849

PATIENT
  Age: 20 Year
  Sex: Female
  Weight: 77 kg

DRUGS (4)
  1. TRYPTANOL [Suspect]
     Active Substance: AMITRIPTYLINE
     Indication: COMPLETED SUICIDE
     Dosage: 26 DOSAGE FORM, ONCE
     Route: 048
     Dates: start: 20160804, end: 20160804
  2. LEXOTAN [Suspect]
     Active Substance: BROMAZEPAM
     Indication: COMPLETED SUICIDE
     Dosage: 150 MG, ONCE
     Route: 048
     Dates: start: 20160804, end: 20160804
  3. BELSOMRA [Suspect]
     Active Substance: SUVOREXANT
     Indication: COMPLETED SUICIDE
     Dosage: 320 MG, ONCE
     Route: 048
     Dates: start: 20160804, end: 20160804
  4. SILECE [Concomitant]
     Active Substance: FLUNITRAZEPAM
     Indication: COMPLETED SUICIDE
     Dosage: 18 MG, ONCE
     Route: 048
     Dates: start: 20160804, end: 20160804

REACTIONS (4)
  - Malaise [Recovered/Resolved]
  - Headache [Recovered/Resolved]
  - Altered state of consciousness [Recovered/Resolved]
  - Overdose [Unknown]

NARRATIVE: CASE EVENT DATE: 20160804
